FAERS Safety Report 5240432-5 (Version None)
Quarter: 2007Q1

REPORT INFORMATION
  Report Type: 
  Country: None (occurrence: None)
  Receive Date: 20070219
  Receipt Date: 20070205
  Transmission Date: 20070707
  Serious: Yes (Other)
  Sender: FDA-Public Use
  Company Number: PHRM2007FR00757

PATIENT
  Sex: Male

DRUGS (1)
  1. COMTAN [Suspect]
     Route: 048

REACTIONS (2)
  - DIARRHOEA [None]
  - ILEITIS [None]
